FAERS Safety Report 19039295 (Version 8)
Quarter: 2022Q4

REPORT INFORMATION
  Report Type: Report from Study
  Country: DE (occurrence: DE)
  Receive Date: 20210322
  Receipt Date: 20221217
  Transmission Date: 20230112
  Serious: Yes (Hospitalization, Other)
  Sender: FDA-Public Use
  Company Number: DE-TAKEDA-DE201911043

PATIENT
  Sex: Male
  Weight: 72 kg

DRUGS (34)
  1. TEDUGLUTIDE [Suspect]
     Active Substance: TEDUGLUTIDE
     Indication: Short-bowel syndrome
     Dosage: 3.650 MILLIGRAM, QD
     Route: 042
     Dates: start: 20180131, end: 20180718
  2. TEDUGLUTIDE [Suspect]
     Active Substance: TEDUGLUTIDE
     Indication: Short-bowel syndrome
     Dosage: 3.650 MILLIGRAM, QD
     Route: 042
     Dates: start: 20180131, end: 20180718
  3. TEDUGLUTIDE [Suspect]
     Active Substance: TEDUGLUTIDE
     Indication: Short-bowel syndrome
     Dosage: 3.650 MILLIGRAM, QD
     Route: 042
     Dates: start: 20180131, end: 20180718
  4. TEDUGLUTIDE [Suspect]
     Active Substance: TEDUGLUTIDE
     Indication: Short-bowel syndrome
     Dosage: 3.650 MILLIGRAM, QD
     Route: 042
     Dates: start: 20180131, end: 20180718
  5. TEDUGLUTIDE [Suspect]
     Active Substance: TEDUGLUTIDE
     Dosage: 3.75 MILLIGRAM, QD
     Route: 042
     Dates: start: 20180718, end: 201809
  6. TEDUGLUTIDE [Suspect]
     Active Substance: TEDUGLUTIDE
     Dosage: 3.75 MILLIGRAM, QD
     Route: 042
     Dates: start: 20180718, end: 201809
  7. TEDUGLUTIDE [Suspect]
     Active Substance: TEDUGLUTIDE
     Dosage: 3.75 MILLIGRAM, QD
     Route: 042
     Dates: start: 20180718, end: 201809
  8. TEDUGLUTIDE [Suspect]
     Active Substance: TEDUGLUTIDE
     Dosage: 3.75 MILLIGRAM, QD
     Route: 042
     Dates: start: 20180718, end: 201809
  9. TEDUGLUTIDE [Suspect]
     Active Substance: TEDUGLUTIDE
     Dosage: 3.55 MILLIGRAM, QD
     Route: 042
     Dates: start: 20190228, end: 201908
  10. TEDUGLUTIDE [Suspect]
     Active Substance: TEDUGLUTIDE
     Dosage: 3.55 MILLIGRAM, QD
     Route: 042
     Dates: start: 20190228, end: 201908
  11. TEDUGLUTIDE [Suspect]
     Active Substance: TEDUGLUTIDE
     Dosage: 3.55 MILLIGRAM, QD
     Route: 042
     Dates: start: 20190228, end: 201908
  12. TEDUGLUTIDE [Suspect]
     Active Substance: TEDUGLUTIDE
     Dosage: 3.55 MILLIGRAM, QD
     Route: 042
     Dates: start: 20190228, end: 201908
  13. CHOLECALCIFEROL [Concomitant]
     Active Substance: CHOLECALCIFEROL
     Indication: Vitamin D deficiency
     Dosage: 20000 INTERNATIONAL UNIT, BID
     Route: 048
  14. ARANESP [Concomitant]
     Active Substance: DARBEPOETIN ALFA
     Indication: Anaemia
     Dosage: 30 MICROGRAM, 1/WEEK
     Route: 058
     Dates: end: 201809
  15. ARANESP [Concomitant]
     Active Substance: DARBEPOETIN ALFA
     Indication: Chronic kidney disease
  16. RANITIDINE HYDROCHLORIDE [Concomitant]
     Active Substance: RANITIDINE HYDROCHLORIDE
     Indication: Gastrooesophageal reflux disease
     Dosage: 150 MILLIGRAM, BID
     Route: 048
  17. ERYTHROPOIETIN [Concomitant]
     Active Substance: ERYTHROPOIETIN
     Indication: Nephrogenic anaemia
     Dosage: UNK UNK, 1/WEEK
     Route: 058
     Dates: start: 20200605
  18. FOLIC ACID [Concomitant]
     Active Substance: FOLIC ACID
     Indication: Nephrogenic anaemia
     Dosage: 5 MILLIGRAM, QD
     Route: 048
     Dates: start: 20200605
  19. FERROUS GLYCINE SULFATE [Concomitant]
     Active Substance: FERROUS GLYCINE SULFATE
     Indication: Nephrogenic anaemia
     Dosage: 100 MILLIGRAM, QD
     Route: 048
     Dates: start: 20200605
  20. VITAMIN B12 [Concomitant]
     Active Substance: CYANOCOBALAMIN
     Indication: Vitamin B12 deficiency
     Dosage: 1000 MILLIGRAM, QD
     Route: 048
     Dates: start: 20200605
  21. CHOLECALCIFEROL [Concomitant]
     Active Substance: CHOLECALCIFEROL
     Indication: Vitamin D deficiency
     Dosage: 18 GTT DROPS, TID
     Route: 048
     Dates: end: 201807
  22. LOPERAMIDE [Concomitant]
     Active Substance: LOPERAMIDE
     Indication: Diarrhoea
     Dosage: 2 MILLIGRAM, TID
     Route: 048
     Dates: end: 201809
  23. LOPERAMIDE [Concomitant]
     Active Substance: LOPERAMIDE
     Indication: Short-bowel syndrome
  24. PECTIN [Concomitant]
     Active Substance: PECTIN
     Indication: Diarrhoea
     Dosage: 4.9 GRAM, TID
     Route: 048
     Dates: end: 201809
  25. PECTIN [Concomitant]
     Active Substance: PECTIN
     Indication: Short-bowel syndrome
  26. POTASSIUM CHLORIDE [Concomitant]
     Active Substance: POTASSIUM CHLORIDE
     Indication: Short-bowel syndrome
     Dosage: 820 MILLIGRAM, TID
     Route: 048
     Dates: end: 201809
  27. POTASSIUM [Concomitant]
     Active Substance: POTASSIUM
     Indication: Hypokalaemia
     Dosage: 600 MILLIGRAM
     Route: 048
     Dates: start: 201811
  28. HOMEOPATHICS [Concomitant]
     Active Substance: HOMEOPATHICS
     Indication: Vertigo
     Dosage: 10 GTT DROPS, TID
     Route: 048
     Dates: start: 201807
  29. PANTOPRAZOLE [Concomitant]
     Active Substance: PANTOPRAZOLE
     Indication: Gastritis
     Dosage: 40 MILLIGRAM, QD
     Route: 048
     Dates: start: 201909
  30. METAMIZOLE [Concomitant]
     Active Substance: METAMIZOLE
     Indication: Abdominal pain upper
     Dosage: 750 MILLIGRAM
     Route: 048
     Dates: start: 20191107
  31. HEPARIN [Concomitant]
     Active Substance: HEPARIN SODIUM
     Route: 065
  32. PANCRELIPASE [Concomitant]
     Active Substance: PANCRELIPASE
     Indication: Steatorrhoea
     Dosage: 25000 INTERNATIONAL UNIT, TID
     Route: 048
     Dates: start: 202002
  33. CHOLESTYRAMINE [Concomitant]
     Active Substance: CHOLESTYRAMINE
     Indication: Diarrhoea
     Dosage: 4000 MILLIGRAM, QD
     Route: 048
     Dates: start: 202003
  34. SODIUM BICARBONATE [Concomitant]
     Active Substance: SODIUM BICARBONATE
     Indication: Acute kidney injury
     Dosage: 100 MILLIGRAM, BID
     Route: 048
     Dates: start: 20200605

REACTIONS (5)
  - Chronic kidney disease [Recovered/Resolved]
  - Pneumothorax [Recovered/Resolved]
  - Vascular device infection [Recovered/Resolved]
  - Abdominal pain [Recovered/Resolved]
  - Hypokalaemia [Recovered/Resolved]

NARRATIVE: CASE EVENT DATE: 20180918
